FAERS Safety Report 4524232-7 (Version None)
Quarter: 2004Q4

REPORT INFORMATION
  Report Type: 
  Country: None (occurrence: None)
  Receive Date: 20041119
  Receipt Date: 20040910
  Transmission Date: 20050328
  Serious: No
  Sender: FDA-Public Use
  Company Number: PHEH2004US09764

PATIENT
  Sex: Female

DRUGS (2)
  1. ZELNORM [Suspect]
     Indication: CONSTIPATION
     Dosage: ORAL
     Route: 048
  2. WELLBUTRIN SR [Suspect]
     Indication: EMOTIONAL DISORDER
     Dosage: ORAL
     Route: 048

REACTIONS (1)
  - STOOL ANALYSIS ABNORMAL [None]
